FAERS Safety Report 26213684 (Version 1)
Quarter: 2025Q4

REPORT INFORMATION
  Report Type: Spontaneous
  Country: US (occurrence: US)
  Receive Date: 20251230
  Receipt Date: 20251230
  Transmission Date: 20260117
  Serious: Yes (Death, Other)
  Sender: ADMA BIOLOGICS
  Company Number: US-ADMA BIOLOGICS INC.-US-2025ADM000405

PATIENT
  Age: 47 Year
  Sex: Male

DRUGS (2)
  1. ASCENIV [Suspect]
     Active Substance: HUMAN IMMUNOGLOBULIN G
     Indication: Dermatomyositis
     Dosage: UNK, UNK
  2. RITUXIMAB [Suspect]
     Active Substance: RITUXIMAB
     Indication: Dermatomyositis
     Dosage: UNK, UNK
     Route: 065

REACTIONS (6)
  - Death [Fatal]
  - Dermatomyositis [Unknown]
  - Condition aggravated [Unknown]
  - Pneumothorax [Unknown]
  - Haemodynamic instability [Unknown]
  - Off label use [Unknown]
